FAERS Safety Report 18745163 (Version 2)
Quarter: 2022Q2

REPORT INFORMATION
  Report Type: Spontaneous
  Country: US (occurrence: US)
  Receive Date: 20210115
  Receipt Date: 20220405
  Transmission Date: 20220721
  Serious: Yes (Other)
  Sender: FDA-Public Use
  Company Number: US-GLAXOSMITHKLINE-US2021GSK009370

PATIENT
  Sex: Female

DRUGS (20)
  1. ZANTAC [Suspect]
     Active Substance: RANITIDINE HYDROCHLORIDE
     Indication: Dyspepsia
     Dosage: UNK UNK, WE
     Route: 065
     Dates: start: 199601, end: 201812
  2. ZANTAC [Suspect]
     Active Substance: RANITIDINE HYDROCHLORIDE
     Indication: Dyspepsia
     Dosage: 25 MG, WE
     Route: 065
     Dates: start: 199601, end: 201812
  3. ZANTAC [Suspect]
     Active Substance: RANITIDINE HYDROCHLORIDE
     Indication: Abdominal discomfort
     Dosage: UNK
  4. ZANTAC [Suspect]
     Active Substance: RANITIDINE HYDROCHLORIDE
     Dosage: UNK
  5. ZANTAC [Suspect]
     Active Substance: RANITIDINE HYDROCHLORIDE
     Dosage: UNK
  6. ZANTAC [Suspect]
     Active Substance: RANITIDINE HYDROCHLORIDE
     Indication: Dyspepsia
     Dosage: UNK UNK, WE
     Route: 065
     Dates: start: 199601, end: 201812
  7. ZANTAC [Suspect]
     Active Substance: RANITIDINE HYDROCHLORIDE
     Indication: Dyspepsia
     Dosage: 25 MG, WE
     Route: 065
     Dates: start: 199601, end: 201812
  8. ZANTAC [Suspect]
     Active Substance: RANITIDINE HYDROCHLORIDE
     Indication: Abdominal discomfort
     Dosage: UNK
  9. ZANTAC [Suspect]
     Active Substance: RANITIDINE HYDROCHLORIDE
     Dosage: UNK
  10. ZANTAC [Suspect]
     Active Substance: RANITIDINE HYDROCHLORIDE
     Dosage: UNK
  11. RANITIDINE [Suspect]
     Active Substance: RANITIDINE
     Indication: Dyspepsia
     Dosage: 25 MG OVER THE COUNTER
     Route: 065
     Dates: start: 200001, end: 201806
  12. RANITIDINE [Suspect]
     Active Substance: RANITIDINE
     Indication: Dyspepsia
     Dosage: 75 MG OVER THE COUNTER
     Route: 065
     Dates: start: 200001, end: 201806
  13. RANITIDINE [Suspect]
     Active Substance: RANITIDINE
     Indication: Abdominal discomfort
     Dosage: UNK, WE
     Route: 065
     Dates: start: 200001, end: 201806
  14. RANITIDINE [Suspect]
     Active Substance: RANITIDINE
     Dosage: 25 MG OVER THE COUNTER
     Route: 065
     Dates: start: 200001, end: 201806
  15. RANITIDINE [Suspect]
     Active Substance: RANITIDINE
     Dosage: 75 MG, WE
     Route: 065
     Dates: start: 200001, end: 201806
  16. RANITIDINE [Suspect]
     Active Substance: RANITIDINE
     Indication: Dyspepsia
     Dosage: 25 MG OVER THE COUNTER
     Route: 065
     Dates: start: 200001, end: 201806
  17. RANITIDINE [Suspect]
     Active Substance: RANITIDINE
     Indication: Dyspepsia
     Dosage: 75 MG OVER THE COUNTER
     Route: 065
     Dates: start: 200001, end: 201806
  18. RANITIDINE [Suspect]
     Active Substance: RANITIDINE
     Indication: Abdominal discomfort
     Dosage: UNK, WE
     Route: 065
     Dates: start: 200001, end: 201806
  19. RANITIDINE [Suspect]
     Active Substance: RANITIDINE
     Dosage: 25 MG OVER THE COUNTER
     Route: 065
     Dates: start: 200001, end: 201806
  20. RANITIDINE [Suspect]
     Active Substance: RANITIDINE
     Dosage: 75 MG, WE
     Route: 065
     Dates: start: 200001, end: 201806

REACTIONS (1)
  - Renal cancer [Unknown]
